FAERS Safety Report 11910437 (Version 4)
Quarter: 2018Q1

REPORT INFORMATION
  Report Type: Spontaneous
  Country: BR (occurrence: BR)
  Receive Date: 20160112
  Receipt Date: 20180321
  Transmission Date: 20180508
  Serious: Yes (Other)
  Sender: FDA-Public Use
  Company Number: BR-JNJFOC-20160104528

PATIENT
  Age: 61 Year
  Sex: Female
  Weight: 76 kg

DRUGS (13)
  1. CORTISONE [Suspect]
     Active Substance: CORTISONE\HYDROCORTISONE
     Indication: PRODUCT USED FOR UNKNOWN INDICATION
     Route: 065
  2. FOLIC ACID. [Concomitant]
     Active Substance: FOLIC ACID
     Route: 065
  3. ALPRAZOLAM. [Suspect]
     Active Substance: ALPRAZOLAM
     Indication: PRODUCT USED FOR UNKNOWN INDICATION
     Route: 065
  4. TECNOMET [Concomitant]
     Active Substance: METHOTREXATE
     Route: 065
  5. BENZOCAINE. [Concomitant]
     Active Substance: BENZOCAINE
     Route: 065
  6. VENZER HCT [Concomitant]
     Route: 065
  7. CORTISONE [Suspect]
     Active Substance: CORTISONE\HYDROCORTISONE
     Indication: PRODUCT USED FOR UNKNOWN INDICATION
     Route: 065
  8. PURAN [Concomitant]
     Active Substance: LEVOTHYROXINE SODIUM
     Route: 065
  9. TECNOMET [Concomitant]
     Active Substance: METHOTREXATE
  10. SIMPONI [Suspect]
     Active Substance: GOLIMUMAB
     Indication: RHEUMATOID ARTHRITIS
     Route: 058
     Dates: start: 20150525
  11. PREDNISOLONE. [Suspect]
     Active Substance: PREDNISOLONE
     Indication: PRODUCT USED FOR UNKNOWN INDICATION
     Route: 065
  12. SELOZOK [Concomitant]
     Active Substance: METOPROLOL SUCCINATE
     Route: 065
  13. OMEPRAZOLE. [Concomitant]
     Active Substance: OMEPRAZOLE
     Route: 065

REACTIONS (8)
  - Weight increased [Unknown]
  - Ligament sprain [Unknown]
  - Influenza [Unknown]
  - Nail bed inflammation [Unknown]
  - Memory impairment [Unknown]
  - Tinnitus [Unknown]
  - Blood pressure inadequately controlled [Unknown]
  - Arthropathy [Unknown]

NARRATIVE: CASE EVENT DATE: 201712
